FAERS Safety Report 20769098 (Version 2)
Quarter: 2023Q1

REPORT INFORMATION
  Report Type: Report from Study
  Country: US (occurrence: US)
  Receive Date: 20220429
  Receipt Date: 20230222
  Transmission Date: 20230418
  Serious: Yes (Hospitalization, Other)
  Sender: FDA-Public Use
  Company Number: US-SAMOHPHARM-2022001723

PATIENT

DRUGS (8)
  1. CYSTADANE [Suspect]
     Active Substance: BETAINE
     Indication: Methylmalonic aciduria
     Dosage: 1 DOSAGE FORM (SCOOPS), BID
     Dates: start: 20211209, end: 202112
  2. CYSTADANE [Suspect]
     Active Substance: BETAINE
     Indication: Off label use
     Dosage: 650 MILLIGRAM, BID
     Route: 048
     Dates: start: 202112
  3. CYSTADANE [Suspect]
     Active Substance: BETAINE
     Dosage: 700 MILLIGRAM, BID
     Route: 048
  4. ACETAMINOPHEN\OXYCODONE HYDROCHLORIDE [Concomitant]
     Active Substance: ACETAMINOPHEN\OXYCODONE HYDROCHLORIDE
     Indication: Product used for unknown indication
  5. SEROQUEL [Concomitant]
     Active Substance: QUETIAPINE FUMARATE
     Indication: Product used for unknown indication
  6. VITAMINS NOS [Concomitant]
     Active Substance: VITAMINS
     Indication: Product used for unknown indication
     Dosage: UNK
  7. LEVOCARNITINE [Concomitant]
     Active Substance: LEVOCARNITINE
     Indication: Product used for unknown indication
     Dosage: UNK
  8. HYDROXOCOBALAMIN [Concomitant]
     Active Substance: HYDROXOCOBALAMIN
     Indication: Product used for unknown indication
     Dosage: UNK

REACTIONS (6)
  - Pneumonia [Recovered/Resolved]
  - Rhinovirus infection [Recovered/Resolved]
  - Rhinovirus infection [Recovered/Resolved]
  - Overdose [Recovered/Resolved]
  - Off label use [Recovered/Resolved]
  - Product dose omission issue [Recovered/Resolved]

NARRATIVE: CASE EVENT DATE: 20211209
